FAERS Safety Report 7886233-0 (Version None)
Quarter: 2011Q4

REPORT INFORMATION
  Report Type: 
  Country: None (occurrence: None)
  Receive Date: 20111102
  Receipt Date: 20110628
  Transmission Date: 20120403
  Serious: No
  Sender: FDA-Public Use
  Company Number: US-AMGEN-USASP2011032984

PATIENT
  Age: 28 Year
  Sex: Male

DRUGS (4)
  1. VITAMIN D [Concomitant]
     Dosage: 50000 IU, UNK
     Route: 048
  2. ENBREL [Suspect]
     Indication: PRODUCT USED FOR UNKNOWN INDICATION
     Dosage: 50 MG, QWK
     Route: 058
  3. IBUPROFEN [Concomitant]
     Dosage: 200 MG, UNK
     Route: 048
  4. PLAQUENIL [Concomitant]
     Dosage: 200 MG, UNK
     Route: 048

REACTIONS (3)
  - RASH PRURITIC [None]
  - RASH ERYTHEMATOUS [None]
  - BLOOD PRESSURE INCREASED [None]
